FAERS Safety Report 19391002 (Version 1)
Quarter: 2021Q2

REPORT INFORMATION
  Report Type: Spontaneous
  Country: US (occurrence: US)
  Receive Date: 20210608
  Receipt Date: 20210608
  Transmission Date: 20210717
  Serious: Yes (Other)
  Sender: FDA-Public Use
  Company Number: US-GLAXOSMITHKLINE-US2021GSK120611

PATIENT
  Sex: Male

DRUGS (3)
  1. RANITIDINE CAPSULE [Suspect]
     Active Substance: RANITIDINE
     Indication: DYSPEPSIA
     Dosage: UNK, PER INSTRUCTIONS ON PACKAGE BUT ALSO SOMETIMES EXTRA AS NEEDED.
     Route: 065
     Dates: start: 201001, end: 201501
  2. RANITIDINE HYDROCHLORIDE. [Suspect]
     Active Substance: RANITIDINE HYDROCHLORIDE
     Indication: DYSPEPSIA
     Dosage: UNK UNK, QD
     Route: 065
     Dates: start: 201501, end: 202011
  3. ZANTAC [Suspect]
     Active Substance: RANITIDINE HYDROCHLORIDE
     Indication: DYSPEPSIA
     Dosage: UNK, PER INSTRUCTIONS ON PACKAGE BUT ALSO SOMETIMES EXTRA AS NEEDED.
     Route: 065
     Dates: start: 201001, end: 201501

REACTIONS (1)
  - Prostate cancer [Unknown]
